FAERS Safety Report 9160055 (Version 2)
Quarter: 2013Q1

REPORT INFORMATION
  Report Type: Report from Study
  Country: US (occurrence: US)
  Receive Date: 20130313
  Receipt Date: 20130321
  Transmission Date: 20140127
  Serious: Yes (Other)
  Sender: FDA-Public Use
  Company Number: US-BAYER-2013-029534

PATIENT
  Age: 34 Year
  Sex: Female

DRUGS (11)
  1. BETASERON [Suspect]
     Indication: MULTIPLE SCLEROSIS
     Dosage: UNK
     Route: 058
     Dates: start: 20060331, end: 20070401
  2. BETASERON [Suspect]
     Indication: MULTIPLE SCLEROSIS
     Dosage: UNK
     Route: 058
     Dates: start: 20080215, end: 20080228
  3. BETASERON [Suspect]
     Indication: MULTIPLE SCLEROSIS
     Dosage: UNK
     Route: 058
     Dates: start: 20100212, end: 20100701
  4. BETASERON [Suspect]
     Indication: MULTIPLE SCLEROSIS
     Dosage: UNK
     Route: 058
     Dates: start: 20111215, end: 20120401
  5. BETASERON [Suspect]
     Indication: MULTIPLE SCLEROSIS
     Dosage: UNK
     Route: 058
     Dates: start: 20120423, end: 20120507
  6. BETASERON [Suspect]
     Indication: MULTIPLE SCLEROSIS
     Dosage: UNK
     Route: 058
     Dates: start: 20120522, end: 20120522
  7. BETASERON [Suspect]
     Indication: MULTIPLE SCLEROSIS
     Dosage: UNK
     Route: 058
     Dates: start: 20120704, end: 20121001
  8. BETASERON [Suspect]
     Indication: MULTIPLE SCLEROSIS
     Dosage: 1 MIU, QOD
     Route: 058
     Dates: start: 20130204
  9. BENADRYL [DIPHENHYDRAMINE HYDROCHLORIDE] [Suspect]
  10. PROZAC [Concomitant]
  11. XANAX [Concomitant]

REACTIONS (7)
  - Burning sensation [Recovered/Resolved]
  - Drug administration error [Not Recovered/Not Resolved]
  - Pruritus generalised [Not Recovered/Not Resolved]
  - Urticaria [Recovered/Resolved]
  - Injection site haemorrhage [Recovered/Resolved]
  - Panic attack [Not Recovered/Not Resolved]
  - Anxiety [Not Recovered/Not Resolved]
